FAERS Safety Report 7960731-3 (Version None)
Quarter: 2011Q4

REPORT INFORMATION
  Report Type: 
  Country: None (occurrence: None)
  Receive Date: 20111206
  Receipt Date: 20091228
  Transmission Date: 20120403
  Serious: Yes (Other)
  Sender: FDA-Public Use
  Company Number: PHHY2009DE070234

PATIENT

DRUGS (2)
  1. FORADIL [Suspect]
  2. ALVESCO [Concomitant]

REACTIONS (2)
  - DYSPNOEA [None]
  - VOCAL CORD PARALYSIS [None]
